FAERS Safety Report 7558155-6 (Version None)
Quarter: 2011Q2

REPORT INFORMATION
  Report Type: 
  Country: None (occurrence: None)
  Receive Date: 20110620
  Receipt Date: 20110419
  Transmission Date: 20111010
  Serious: Yes (Other)
  Sender: FDA-Public Use
  Company Number: US-ASTRAZENECA-2011SE22441

PATIENT
  Age: 57 Year
  Sex: Female

DRUGS (3)
  1. IBUPROFEN [Concomitant]
  2. CRESTOR [Suspect]
     Indication: HYPERCHOLESTEROLAEMIA
     Route: 048
     Dates: start: 20100428, end: 20110201
  3. TYLENOL-500 [Concomitant]

REACTIONS (7)
  - ABSCESS INTESTINAL [None]
  - COLD SWEAT [None]
  - DYSSTASIA [None]
  - IMPAIRED WORK ABILITY [None]
  - ABDOMINAL ADHESIONS [None]
  - MOVEMENT DISORDER [None]
  - ABDOMINAL PAIN [None]
